FAERS Safety Report 5340838-X (Version None)
Quarter: 2007Q2

REPORT INFORMATION
  Report Type: 
  Country: None (occurrence: None)
  Receive Date: 20070405
  Receipt Date: 20061211
  Transmission Date: 20071010
  Serious: No
  Sender: FDA-Public Use
  Company Number: US200612001630

PATIENT
  Age: 63 Year
  Sex: Female

DRUGS (2)
  1. CYMBALTA [Suspect]
     Indication: NEURALGIA
     Dosage: 20 MG, DAILY (1/D)
     Dates: start: 20061006, end: 20061101
  2. HYDROCODONE BITARTRATE [Concomitant]

REACTIONS (11)
  - ASTHENIA [None]
  - BLOOD GLUCOSE INCREASED [None]
  - DEHYDRATION [None]
  - HYPOAESTHESIA [None]
  - HYPOGLYCAEMIA [None]
  - MENTAL STATUS CHANGES [None]
  - MUSCLE SPASMS [None]
  - NERVOUSNESS [None]
  - PARAESTHESIA [None]
  - POLLAKIURIA [None]
  - WEIGHT DECREASED [None]
